FAERS Safety Report 6157412-8 (Version None)
Quarter: 2009Q2

REPORT INFORMATION
  Report Type: 
  Country: None (occurrence: None)
  Receive Date: 20090416
  Receipt Date: 20090408
  Transmission Date: 20091009
  Serious: Yes (Hospitalization)
  Sender: FDA-Public Use
  Company Number: FR-PFIZER INC-2009195694

PATIENT

DRUGS (1)
  1. TAHOR [Suspect]
     Dosage: 80 UNK, UNK
     Route: 048

REACTIONS (2)
  - CYTOLYTIC HEPATITIS [None]
  - RENAL FAILURE [None]
